FAERS Safety Report 5157879-8 (Version None)
Quarter: 2006Q4

REPORT INFORMATION
  Report Type: 
  Country: None (occurrence: None)
  Receive Date: 20061115
  Receipt Date: 20061109
  Transmission Date: 20070319
  Serious: Yes (Other)
  Sender: FDA-Public Use
  Company Number: GXKR2006GB07240

PATIENT
  Age: 61 Year
  Sex: Male

DRUGS (2)
  1. WARFARIN SODIUM [Suspect]
     Indication: PROPHYLAXIS
     Dosage: 8 MG, QD, ORAL
     Route: 048
     Dates: start: 20051128
  2. HERBAL EXTRACTS NOS (NO INGREDIENTS/SUBSTANCES) [Suspect]
     Indication: POOR PERIPHERAL CIRCULATION
     Dosage: 2 DF, BID, ORAL
     Route: 048
     Dates: start: 20060401

REACTIONS (2)
  - DRUG INTERACTION [None]
  - INTERNATIONAL NORMALISED RATIO INCREASED [None]
